FAERS Safety Report 4664331-2 (Version None)
Quarter: 2005Q2

REPORT INFORMATION
  Report Type: 
  Country: None (occurrence: None)
  Receive Date: 20050518
  Receipt Date: 20050513
  Transmission Date: 20051028
  Serious: Yes (Life-Threatening, Hospitalization, Other)
  Sender: FDA-Public Use
  Company Number: US-BRISTOL-MYERS SQUIBB COMPANY-12969028

PATIENT
  Age: 22 Year
  Sex: Female
  Weight: 75 kg

DRUGS (19)
  1. SUSTIVA [Suspect]
     Indication: HIV INFECTION
     Dosage: INTERRUPTED ON 03-MAY-2005
     Route: 048
     Dates: start: 20031103
  2. COMBIVIR [Suspect]
     Indication: HIV INFECTION
     Dosage: DOSE REPORTED AS 450 MG
     Route: 048
     Dates: start: 20050214, end: 20050503
  3. TENOFOVIR [Suspect]
     Indication: HIV INFECTION
     Route: 048
     Dates: end: 20050214
  4. EPIVIR [Suspect]
     Indication: HIV INFECTION
     Route: 048
     Dates: start: 20031103, end: 20050214
  5. BACTRIM [Suspect]
     Indication: OTITIS MEDIA ACUTE
  6. DEPAKOTE [Concomitant]
     Route: 048
     Dates: start: 20031120
  7. SYNTHROID [Concomitant]
     Route: 048
     Dates: start: 20031103
  8. ZOLOFT [Concomitant]
     Route: 048
     Dates: start: 20031103
  9. ALLEGRA [Concomitant]
     Route: 048
     Dates: start: 20031103
  10. RISPERDAL [Concomitant]
     Route: 048
     Dates: start: 20031103
  11. BENZATROPINE [Concomitant]
     Route: 048
     Dates: start: 20031103
  12. ATIVAN [Concomitant]
     Route: 048
     Dates: start: 20031103
  13. TRILEPTAL [Concomitant]
     Route: 048
     Dates: start: 20031103
  14. STRATTERA [Concomitant]
     Route: 048
     Dates: start: 20030814
  15. ALBUTEROL [Concomitant]
     Route: 055
  16. CLARITIN [Concomitant]
     Dates: start: 20041115
  17. MULTI-VITAMIN [Concomitant]
     Route: 048
  18. ULTRAM [Concomitant]
     Route: 048
  19. COLACE [Concomitant]
     Route: 048

REACTIONS (8)
  - ANAEMIA [None]
  - FEBRILE NEUTROPENIA [None]
  - HYPOPHOSPHATAEMIA [None]
  - HYPOTENSION [None]
  - PANCYTOPENIA [None]
  - PYREXIA [None]
  - RASH PRURITIC [None]
  - SOMNOLENCE [None]
